FAERS Safety Report 25583203 (Version 1)
Quarter: 2025Q3

REPORT INFORMATION
  Report Type: Spontaneous
  Country: JP (occurrence: JP)
  Receive Date: 20250721
  Receipt Date: 20250721
  Transmission Date: 20251020
  Serious: Yes (Hospitalization)
  Sender: AMGEN
  Company Number: JP-DSJP-DS-2025-153543-

PATIENT
  Age: 75 Year
  Sex: Female

DRUGS (5)
  1. DENOSUMAB [Suspect]
     Active Substance: DENOSUMAB
     Indication: Metastases to bone
     Route: 065
  2. ABEMACICLIB [Suspect]
     Active Substance: ABEMACICLIB
     Indication: Hormone receptor positive HER2 negative breast cancer
     Route: 065
  3. CAPIVASERTIB [Suspect]
     Active Substance: CAPIVASERTIB
     Indication: Hormone receptor positive HER2 negative breast cancer
     Route: 048
  4. ANASTROZOLE [Concomitant]
     Active Substance: ANASTROZOLE
     Indication: Hormone receptor positive HER2 negative breast cancer
     Route: 065
  5. FULVESTRANT [Concomitant]
     Active Substance: FULVESTRANT
     Indication: Hormone receptor positive HER2 negative breast cancer
     Route: 065

REACTIONS (5)
  - Hyperglycaemia [Recovering/Resolving]
  - Urinary tract infection [Recovering/Resolving]
  - Cardiac failure [Recovering/Resolving]
  - Drug eruption [Recovering/Resolving]
  - Anaemia [Unknown]
